FAERS Safety Report 9490533 (Version 1)
Quarter: 2013Q3

REPORT INFORMATION
  Report Type: Spontaneous
  Country: TR (occurrence: None)
  Receive Date: 20130826
  Receipt Date: 20130826
  Transmission Date: 20140515
  Serious: Yes (Death, Hospitalization)
  Sender: FDA-Public Use
  Company Number: UTC-036982

PATIENT
  Sex: Female

DRUGS (2)
  1. REMODULIN (2.5 MILLIGRAM/MILLILITERS, INJECTION FOR INFUSION) (TREPROSTINIL SODIUM) [Suspect]
     Indication: PRODUCT USED FOR UNKNOWN INDICATION
     Dosage: 0.01 ML 1 IN 1 HR
     Route: 058
     Dates: start: 20130607, end: 20130731
  2. BOSENTAN (UNKNOWN) [Concomitant]

REACTIONS (2)
  - Respiratory distress [None]
  - Disease progression [None]
